FAERS Safety Report 9370708 (Version 2)
Quarter: 2013Q3

REPORT INFORMATION
  Report Type: Spontaneous
  Country: FR (occurrence: FR)
  Receive Date: 20130626
  Receipt Date: 20130701
  Transmission Date: 20140515
  Serious: Yes (Life-Threatening, Hospitalization)
  Sender: FDA-Public Use
  Company Number: FR-TEVA-414019ISR

PATIENT
  Age: 74 Year
  Sex: Male

DRUGS (6)
  1. FUROSEMIDE TEVA 40 MG [Suspect]
     Dosage: 120 MILLIGRAM DAILY;
     Route: 048
     Dates: start: 20130515, end: 20130610
  2. ZESTRIL [Concomitant]
     Dosage: 20  DAILY;
     Dates: start: 1998
  3. CRESTOR [Concomitant]
     Dosage: 5  DAILY;
     Dates: start: 2011
  4. PREVISCAN [Concomitant]
     Dosage: 0.5 EVERY DAY
     Dates: start: 1998
  5. CARDENSIEL [Concomitant]
     Dosage: 5 MILLIGRAM DAILY;
     Dates: start: 1998
  6. LASILIX [Concomitant]
     Dosage: 120 MILLIGRAM DAILY;

REACTIONS (5)
  - Somnolence [Recovered/Resolved]
  - Diarrhoea [Recovered/Resolved]
  - Decreased appetite [Recovered/Resolved]
  - Dyspnoea [Not Recovered/Not Resolved]
  - Cardiac failure [Not Recovered/Not Resolved]
